FAERS Safety Report 8681851 (Version 2)
Quarter: 2013Q4

REPORT INFORMATION
  Report Type: Spontaneous
  Country: FR (occurrence: FR)
  Receive Date: 20120725
  Receipt Date: 20131010
  Transmission Date: 20140711
  Serious: Yes (Hospitalization, Other)
  Sender: FDA-Public Use
  Company Number: FR-PFIZER INC-2012177594

PATIENT
  Age: 64 Year
  Sex: Male

DRUGS (5)
  1. CORDARONE [Suspect]
     Indication: ATRIAL FIBRILLATION
     Dosage: 600 MG, DAILY
     Route: 048
     Dates: start: 20120612, end: 20120612
  2. CORDARONE [Interacting]
     Dosage: 400 MG, DAILY
     Route: 048
     Dates: start: 20120613, end: 20120613
  3. CORDARONE [Interacting]
     Dosage: 200 MG, DAILY
     Route: 048
     Dates: start: 20120614, end: 20120614
  4. PRADAXA [Interacting]
     Indication: ATRIAL FIBRILLATION
     Dosage: 150 MG TWICE DAILY
     Route: 048
     Dates: start: 20120612, end: 20120615
  5. TRIATEC [Concomitant]
     Dosage: 2.5 MG, DAILY
     Route: 048
     Dates: start: 20120612, end: 20120615

REACTIONS (8)
  - Transaminases increased [Recovered/Resolved]
  - Gamma-glutamyltransferase increased [Recovered/Resolved]
  - Bilirubin conjugated increased [Recovered/Resolved]
  - Renal failure [Unknown]
  - Cardiac failure [Unknown]
  - Drug interaction [Unknown]
  - International normalised ratio increased [Unknown]
  - Hepatic steatosis [Unknown]
